FAERS Safety Report 9790782 (Version 2)
Quarter: 2014Q1

REPORT INFORMATION
  Report Type: Report from Study
  Country: JP (occurrence: JP)
  Receive Date: 20131231
  Receipt Date: 20140207
  Transmission Date: 20141002
  Serious: Yes (Hospitalization)
  Sender: FDA-Public Use
  Company Number: JP-AMGEN-JPNCT2013090959

PATIENT
  Age: 96 Year
  Sex: Female
  Weight: 42 kg

DRUGS (14)
  1. DARBEPOETIN ALFA [Suspect]
     Indication: NEPHROGENIC ANAEMIA
     Dosage: 180 MUG, QD
     Route: 040
     Dates: start: 20111112, end: 20130523
  2. GASMOTIN [Concomitant]
     Dosage: UNK
     Route: 048
  3. SELBEX [Concomitant]
     Dosage: UNK
     Route: 048
  4. BIO-THREE [Concomitant]
     Dosage: UNK
     Route: 048
  5. TOWARAT [Concomitant]
     Dosage: UNK
     Route: 048
  6. FLUITRAN [Concomitant]
     Dosage: UNK
     Route: 048
  7. CALBLOCK [Concomitant]
     Dosage: UNK
     Route: 048
  8. AMARYL [Concomitant]
     Dosage: UNK
     Route: 048
  9. EQUA [Concomitant]
     Dosage: UNK
     Route: 048
  10. OLMETEC [Concomitant]
     Dosage: UNK
     Route: 048
  11. VEMAS [Concomitant]
     Dosage: UNK
     Route: 048
  12. RISPERIDONE [Concomitant]
     Dosage: UNK
     Route: 048
  13. REZALTAS [Concomitant]
     Dosage: UNK
     Route: 048
  14. DIART [Concomitant]
     Dosage: UNK
     Route: 048

REACTIONS (3)
  - Cardiac failure congestive [Recovering/Resolving]
  - Enteritis infectious [Recovered/Resolved]
  - Renal failure [Not Recovered/Not Resolved]
